FAERS Safety Report 5846378-3 (Version None)
Quarter: 2008Q3

REPORT INFORMATION
  Report Type: 
  Country: None (occurrence: None)
  Receive Date: 20080815
  Receipt Date: 20080806
  Transmission Date: 20090109
  Serious: Yes (Other)
  Sender: FDA-Public Use
  Company Number: US-BAYER-200827169NA

PATIENT
  Age: 26 Year
  Sex: Female

DRUGS (5)
  1. MIRENA [Suspect]
     Indication: DRUG USE FOR UNKNOWN INDICATION
     Route: 015
     Dates: start: 20030101, end: 20080601
  2. CYTOTEC [Concomitant]
     Indication: DRUG USE FOR UNKNOWN INDICATION
     Dates: start: 20080520
  3. ULTRAM [Concomitant]
  4. INTRAVENOUS SEDATION [Concomitant]
     Indication: PROCEDURAL PAIN
     Route: 042
     Dates: start: 20080611
  5. BACTRIM DS [Concomitant]
     Indication: URINARY TRACT INFECTION
     Dates: start: 20080410

REACTIONS (5)
  - BLADDER DISCOMFORT [None]
  - COMPLICATION OF DEVICE REMOVAL [None]
  - POLLAKIURIA [None]
  - PROCEDURAL PAIN [None]
  - URINARY TRACT INFECTION [None]
